FAERS Safety Report 9004636 (Version 1)
Quarter: 2013Q1

REPORT INFORMATION
  Report Type: Spontaneous
  Country: US (occurrence: None)
  Receive Date: 20130103
  Receipt Date: 20130103
  Transmission Date: 20140127
  Serious: Yes (Hospitalization)
  Sender: FDA-Public Use
  Company Number: None

PATIENT
  Age: 48 Year
  Sex: Female

DRUGS (1)
  1. LAMOTRIGINE [Suspect]
     Indication: AFFECT LABILITY
     Dosage: 100MG BID PO
     Route: 048
     Dates: start: 20121127, end: 20121214

REACTIONS (3)
  - Rash [None]
  - Lip swelling [None]
  - Swollen tongue [None]
